FAERS Safety Report 21985884 (Version 5)
Quarter: 2023Q2

REPORT INFORMATION
  Report Type: Report from Study
  Country: US (occurrence: US)
  Receive Date: 20230213
  Receipt Date: 20230601
  Transmission Date: 20230721
  Serious: Yes (Hospitalization)
  Sender: FDA-Public Use
  Company Number: US-GILEAD-2023-0614580

PATIENT
  Age: 77 Year
  Sex: Male
  Weight: 86 kg

DRUGS (44)
  1. BREXUCABTAGENE AUTOLEUCEL [Suspect]
     Active Substance: BREXUCABTAGENE AUTOLEUCEL
     Indication: Mantle cell lymphoma
     Dosage: 68
     Route: 065
     Dates: start: 20221228, end: 20221228
  2. CYTARABINE [Suspect]
     Active Substance: CYTARABINE
     Indication: Mantle cell lymphoma
     Dosage: 3880
     Route: 065
     Dates: start: 20221208, end: 20221209
  3. CYCLOPHOSPHAMIDE [Suspect]
     Active Substance: CYCLOPHOSPHAMIDE
     Indication: Mantle cell lymphoma
     Dosage: 1000
     Route: 065
     Dates: start: 20221222, end: 20221224
  4. FLUDARABINE [Suspect]
     Active Substance: FLUDARABINE PHOSPHATE
     Indication: Mantle cell lymphoma
     Dosage: 60
     Route: 065
     Dates: start: 20221222, end: 20221224
  5. IMODIUM [Concomitant]
     Active Substance: LOPERAMIDE HYDROCHLORIDE
     Dosage: 1,OTHER,ONCE
     Route: 048
     Dates: start: 20221226, end: 20221226
  6. ALLOPURINOL [Concomitant]
     Active Substance: ALLOPURINOL
     Dosage: 300,MG,DAILY
     Route: 048
     Dates: start: 20221129
  7. FLUCONAZOLE [Concomitant]
     Active Substance: FLUCONAZOLE
     Dosage: 400,MG,DAILY
     Route: 048
     Dates: start: 20221225
  8. GABAPENTIN [Concomitant]
     Active Substance: GABAPENTIN
     Dosage: 400,MG,FOUR TIMES DAILY
     Route: 048
     Dates: start: 20221226, end: 20230112
  9. LEVETIRACETAM [Concomitant]
     Active Substance: LEVETIRACETAM
     Dosage: 500,MG,TWICE DAILY
     Route: 048
     Dates: start: 20221226, end: 20230125
  10. LEVETIRACETAM [Concomitant]
     Active Substance: LEVETIRACETAM
     Dosage: 500,MG,TWICE DAILY
     Route: 048
     Dates: start: 20221227, end: 20230125
  11. LEVETIRACETAM [Concomitant]
     Active Substance: LEVETIRACETAM
     Dosage: 500,MG,TWICE DAILY
     Route: 048
     Dates: start: 20230126
  12. MELATONIN [Concomitant]
     Active Substance: MELATONIN
     Dosage: 3,MG,OTHER
     Route: 048
     Dates: start: 20221227
  13. EZETIMIBE [Concomitant]
     Active Substance: EZETIMIBE
     Dosage: 10,MG,DAILY
     Route: 048
     Dates: start: 20221228
  14. EZETIMIBE [Concomitant]
     Active Substance: EZETIMIBE
     Dosage: 10 MG, QD
     Route: 048
     Dates: start: 20211111
  15. METHYLPREDNISOLONE [Concomitant]
     Active Substance: METHYLPREDNISOLONE
     Dosage: 125,MG,TWICE DAILY
     Route: 042
     Dates: start: 20230108, end: 20230109
  16. METHYLPREDNISOLONE [Concomitant]
     Active Substance: METHYLPREDNISOLONE
     Dosage: 60,MG,TWICE DAILY
     Route: 042
     Dates: start: 20230110, end: 20230111
  17. METHYLPREDNISOLONE [Concomitant]
     Active Substance: METHYLPREDNISOLONE
     Dosage: 1000,MG,DAILY
     Route: 042
     Dates: start: 20230103, end: 20230105
  18. METHYLPREDNISOLONE [Concomitant]
     Active Substance: METHYLPREDNISOLONE
     Dosage: 250,MG,TWICE DAILY
     Route: 042
     Dates: start: 20230106, end: 20230107
  19. SOLU-MEDROL [Concomitant]
     Active Substance: METHYLPREDNISOLONE SODIUM SUCCINATE
     Dosage: 125,MG,TWICE DAILY
     Route: 042
     Dates: start: 20230108, end: 20230109
  20. SOLU-MEDROL [Concomitant]
     Active Substance: METHYLPREDNISOLONE SODIUM SUCCINATE
     Dosage: 60,MG,TWICE DAILY
     Route: 042
     Dates: start: 20230110, end: 20230111
  21. SOLU-MEDROL [Concomitant]
     Active Substance: METHYLPREDNISOLONE SODIUM SUCCINATE
     Dosage: 1,G,DAILY
     Route: 042
     Dates: start: 20230103, end: 20230105
  22. SOLU-MEDROL [Concomitant]
     Active Substance: METHYLPREDNISOLONE SODIUM SUCCINATE
     Dosage: 250,MG,TWICE DAILY
     Route: 042
     Dates: start: 20230106, end: 20230107
  23. ACETAMINOPHEN [Concomitant]
     Active Substance: ACETAMINOPHEN
     Dosage: 650,MG,ONCE
     Route: 048
     Dates: start: 20230109, end: 20230109
  24. ACETAMINOPHEN [Concomitant]
     Active Substance: ACETAMINOPHEN
     Dosage: 650,MG,ONCE
     Route: 048
     Dates: start: 20230121, end: 20230121
  25. ACETAMINOPHEN [Concomitant]
     Active Substance: ACETAMINOPHEN
     Dosage: 650,MG,FOUR TIMES DAILY
     Route: 048
     Dates: start: 20230125, end: 20230125
  26. ACETAMINOPHEN [Concomitant]
     Active Substance: ACETAMINOPHEN
     Dosage: 650,MG,ONCE
     Route: 048
     Dates: start: 20221228, end: 20221228
  27. CALCIUM CARBONATE [Concomitant]
     Active Substance: CALCIUM CARBONATE
     Dosage: 500,MG,DAILY
     Route: 048
     Dates: start: 20230118
  28. PROCHLORPERAZINE [Concomitant]
     Active Substance: PROCHLORPERAZINE
     Dosage: 5,MG,FOUR TIMES DAILY
     Route: 048
     Dates: start: 20230125
  29. LEVOFLOXACIN [Concomitant]
     Active Substance: LEVOFLOXACIN
     Dosage: 500,MG,ONCE
     Route: 048
     Dates: start: 20230125, end: 20230125
  30. LEVOFLOXACIN [Concomitant]
     Active Substance: LEVOFLOXACIN
     Dosage: 500,MG,TWICE DAILY
     Route: 048
     Dates: start: 20221227, end: 20221229
  31. ACYCLOVIR [Concomitant]
     Active Substance: ACYCLOVIR
     Dosage: 400,MG,TWICE DAILY
     Route: 048
     Dates: start: 20230125
  32. ALBUTEROL [Concomitant]
     Active Substance: ALBUTEROL
     Dosage: 2,OTHER,THREE TIMES DAILY
     Route: 055
     Dates: start: 20230125
  33. CEFDINIR [Concomitant]
     Active Substance: CEFDINIR
     Dosage: 300,MG,TWICE DAILY
     Route: 048
     Dates: start: 20230126
  34. HYDROMORPHONE [Concomitant]
     Active Substance: HYDROMORPHONE
     Dosage: 1,MG,ONCE
     Route: 042
     Dates: start: 20230126, end: 20230126
  35. ASCORBIC ACID [Concomitant]
     Active Substance: ASCORBIC ACID
     Dosage: 500,MG,DAILY
     Route: 048
     Dates: start: 20230126
  36. GANCICLOVIR [Concomitant]
     Active Substance: GANCICLOVIR
     Dosage: 700,MG,DAILY
     Route: 042
     Dates: start: 20230131, end: 20230228
  37. TRAMADOL [Concomitant]
     Active Substance: TRAMADOL
     Dosage: 50,MG,FOUR TIMES DAILY
     Route: 048
     Dates: start: 20221226, end: 20221230
  38. CEFEPIME [Concomitant]
     Active Substance: CEFEPIME HYDROCHLORIDE
     Dosage: 2,G,THREE TIMES DAILY
     Route: 042
     Dates: start: 20221229, end: 20230107
  39. CEFEPIME [Concomitant]
     Active Substance: CEFEPIME HYDROCHLORIDE
     Dosage: UNK
     Dates: start: 20230218, end: 20230222
  40. SODIUM CHLORIDE [Concomitant]
     Active Substance: SODIUM CHLORIDE
     Dosage: 1,L,OTHER
     Route: 042
     Dates: start: 20221229, end: 20230101
  41. TOCILIZUMAB [Concomitant]
     Active Substance: TOCILIZUMAB
     Dosage: 636,MG,ONCE
     Route: 042
     Dates: start: 20221231, end: 20221231
  42. TOCILIZUMAB [Concomitant]
     Active Substance: TOCILIZUMAB
     Dosage: 636,MG,ONCE
     Route: 042
     Dates: start: 20221231, end: 20221231
  43. DEXAMETHASONE [Concomitant]
     Active Substance: DEXAMETHASONE
     Dosage: 10,MG,FOUR TIMES DAILY
     Route: 042
     Dates: start: 20230102, end: 20230103
  44. DIPHENHYDRAMINE [Concomitant]
     Active Substance: DIPHENHYDRAMINE
     Dosage: 12.5,MG,ONCE
     Route: 042
     Dates: start: 20221228, end: 20221228

REACTIONS (4)
  - Gait disturbance [Recovered/Resolved]
  - Neurotoxicity [Recovered/Resolved]
  - Confusional state [Recovered/Resolved]
  - Anaemia [Recovered/Resolved]

NARRATIVE: CASE EVENT DATE: 20230125
